FAERS Safety Report 5530802-X (Version None)
Quarter: 2007Q4

REPORT INFORMATION
  Report Type: 
  Country: None (occurrence: None)
  Receive Date: 20071130
  Receipt Date: 20071126
  Transmission Date: 20080405
  Serious: Yes (Other)
  Sender: FDA-Public Use
  Company Number: AU-AVENTIS-200720857GDDC

PATIENT
  Age: 54 Year
  Sex: Female

DRUGS (12)
  1. LANTUS [Suspect]
     Route: 058
     Dates: start: 20060716
  2. LANTUS [Suspect]
     Route: 058
     Dates: start: 20060716
  3. LEVOTHYROXINE SODIUM [Concomitant]
  4. CALTRATE                           /00108001/ [Concomitant]
  5. NITROLINGUAL [Concomitant]
  6. NOVORAPID [Concomitant]
  7. ASPIRIN [Concomitant]
  8. ISCOVER [Concomitant]
  9. NEXIUM [Concomitant]
  10. LIPITOR [Concomitant]
  11. VERAPAMIL [Concomitant]
  12. PANADEINE                          /00116401/ [Concomitant]

REACTIONS (1)
  - MYOCARDIAL INFARCTION [None]
